FAERS Safety Report 10082938 (Version 2)
Quarter: 2014Q2

REPORT INFORMATION
  Report Type: Spontaneous
  Country: CN (occurrence: CN)
  Receive Date: 20140417
  Receipt Date: 20140417
  Transmission Date: 20141212
  Serious: Yes (Life-Threatening, Hospitalization)
  Sender: FDA-Public Use
  Company Number: CN-ROCHE-1333881

PATIENT
  Age: 57 Year
  Sex: Female

DRUGS (7)
  1. TRASTUZUMAB [Suspect]
     Indication: BREAST CANCER
     Dosage: LOADING DOSE
     Route: 065
     Dates: start: 20100526
  2. TRASTUZUMAB [Suspect]
     Dosage: SECOND CYCLE
     Route: 065
  3. TRASTUZUMAB [Suspect]
     Dosage: LOADING DOSE AFTER INTERRUPTION RESTARTED
     Route: 065
     Dates: start: 20101230
  4. CARBOPLATIN [Concomitant]
     Dosage: AREA UNDER THE CURVE = 6
     Route: 065
  5. CARBOPLATIN [Concomitant]
     Dosage: AREA UNDER THE CURVE = 4
     Route: 065
  6. ABRAXANE [Concomitant]
     Route: 065
  7. ABRAXANE [Concomitant]
     Route: 065

REACTIONS (1)
  - Thrombocytopenia [Recovered/Resolved]
